FAERS Safety Report 7937523-4 (Version None)
Quarter: 2011Q4

REPORT INFORMATION
  Report Type: 
  Country: None (occurrence: None)
  Receive Date: 20111123
  Receipt Date: 20111121
  Transmission Date: 20120403
  Serious: Yes (Other)
  Sender: FDA-Public Use
  Company Number: US-BAYER-US-2007-027520

PATIENT
  Age: 46 Year
  Sex: Female

DRUGS (11)
  1. PRAVASTATIN SODIUM [Concomitant]
     Dosage: 80 MG, 1X/DAY
     Route: 048
  2. ESCITALOPRAM OXALATE [Concomitant]
  3. EZETIMIBE [Concomitant]
  4. BETASERON [Suspect]
     Dosage: UNK
     Dates: start: 20110913, end: 20111118
  5. LOSARTAN POTASSIUM/HYDROCHLOROTHIAZIDE [Concomitant]
  6. LEVOTHYROXINE SODIUM [Concomitant]
  7. ARGATROBAN [Concomitant]
  8. BETASERON [Suspect]
     Dosage: UNK
     Dates: start: 20080731, end: 20091001
  9. BETASERON [Suspect]
     Dosage: UNK
     Dates: start: 20101127, end: 20110830
  10. ARGATROBAN [Concomitant]
  11. BETASERON [Suspect]
     Indication: RELAPSING-REMITTING MULTIPLE SCLEROSIS
     Dosage: 8 MIU, EVERY 2D
     Route: 058
     Dates: start: 20060523, end: 20080704

REACTIONS (6)
  - MULTIPLE SCLEROSIS [None]
  - LIVER FUNCTION TEST ABNORMAL [None]
  - GAIT DISTURBANCE [None]
  - MUSCLE SPASMS [None]
  - THYROID NEOPLASM [None]
  - INFLAMMATION [None]
